FAERS Safety Report 15027267 (Version 1)
Quarter: 2018Q2

REPORT INFORMATION
  Report Type: Spontaneous
  Country: DE (occurrence: DE)
  Receive Date: 20180619
  Receipt Date: 20180619
  Transmission Date: 20180711
  Serious: Yes (Hospitalization)
  Sender: FDA-Public Use
  Company Number: DE-TEVA-2018-DE-907639

PATIENT
  Age: 86 Year
  Sex: Male
  Weight: 70 kg

DRUGS (4)
  1. VALSARTAN. [Suspect]
     Active Substance: VALSARTAN
     Dosage: 1-0-1-0
     Route: 065
  2. DOXAGAMMA 8 [Suspect]
     Active Substance: DOXAZOSIN MESYLATE
     Dosage: 1-0-1-0
     Route: 065
  3. ZOLPIDEM [Suspect]
     Active Substance: ZOLPIDEM\ZOLPIDEM TARTRATE
     Dosage: 0-0-0-1
     Route: 065
  4. ASS 100 [Concomitant]
     Active Substance: ASPIRIN
     Dosage: 1-0-0-0
     Route: 065

REACTIONS (4)
  - Fall [Unknown]
  - Drug prescribing error [Unknown]
  - Dizziness [Unknown]
  - Syncope [Unknown]
